FAERS Safety Report 8546294-2 (Version None)
Quarter: 2012Q3

REPORT INFORMATION
  Report Type: 
  Country: None (occurrence: None)
  Receive Date: 20120727
  Receipt Date: 20111229
  Transmission Date: 20120928
  Serious: No
  Sender: FDA-Public Use
  Company Number: US-ASTRAZENECA-2011SE75377

PATIENT
  Age: 60 Year
  Sex: Female

DRUGS (1)
  1. SEROQUEL [Suspect]
     Route: 048

REACTIONS (6)
  - ABNORMAL DREAMS [None]
  - TACHYPHRENIA [None]
  - DRUG DOSE OMISSION [None]
  - MALAISE [None]
  - ADVERSE DRUG REACTION [None]
  - HEADACHE [None]
